FAERS Safety Report 10355396 (Version 2)
Quarter: 2014Q3

REPORT INFORMATION
  Report Type: Spontaneous
  Country: US (occurrence: None)
  Receive Date: 20140729
  Receipt Date: 20140829
  Transmission Date: 20150326
  Serious: Yes (Other)
  Sender: FDA-Public Use
  Company Number: 2014-US-009029

PATIENT
  Age: 63 Year
  Sex: Female

DRUGS (17)
  1. ATIVAN [Concomitant]
     Active Substance: LORAZEPAM
  2. 5-HYDROXYTRYPTOPHAN [Concomitant]
     Active Substance: OXITRIPTAN
  3. PYRIDOXINE HCL CRYSTAL (PRYIDOXINE HYDROCHLORIDE) [Concomitant]
  4. TRYPTOPHAN (TRYPTOPHAN; I-) [Concomitant]
  5. PHENOBARBITAL. [Suspect]
     Active Substance: PHENOBARBITAL
     Indication: CONVULSION
  6. B-12 SHOT (CYANOCOBALAMIN) [Concomitant]
  7. PRILOSEC (OMEPRAZOLE) [Concomitant]
     Active Substance: OMEPRAZOLE MAGNESIUM
  8. PREDNISONE. [Concomitant]
     Active Substance: PREDNISONE
  9. MOTRIN IB CAPLET (IBUPROFEN) [Concomitant]
  10. ALL OTHER THERAPUETIC PRODUCTS (TAURINE PRODUCTS) [Concomitant]
  11. XYREM [Suspect]
     Active Substance: SODIUM OXYBATE
     Indication: FIBROMYALGIA
     Route: 048
     Dates: start: 200510, end: 2005
  12. PAXIL [Concomitant]
     Active Substance: PAROXETINE HYDROCHLORIDE
  13. VITAMIN B6 (VITAMIN B6) [Concomitant]
  14. PROGESTERONE W/ESTROGENS (ESTROGEN NOS, PROGESTERONE) [Concomitant]
  15. PROBIOTICS [Concomitant]
     Active Substance: PROBIOTICS NOS
  16. ONDANSETRON ODT (ODANSETRON HYDROCHLRIDE) [Concomitant]
  17. VITAMIN C [Concomitant]
     Active Substance: ASCORBIC ACID

REACTIONS (5)
  - Depression [None]
  - Off label use [None]
  - Crying [None]
  - Condition aggravated [None]
  - Convulsion [None]

NARRATIVE: CASE EVENT DATE: 201407
